FAERS Safety Report 15179812 (Version 1)
Quarter: 2018Q3

REPORT INFORMATION
  Report Type: Spontaneous
  Country: CA (occurrence: CA)
  Receive Date: 20180723
  Receipt Date: 20180723
  Transmission Date: 20181010
  Serious: Yes (Life-Threatening, Hospitalization, Other)
  Sender: FDA-Public Use
  Company Number: CA-AXELLIA-001781

PATIENT
  Age: 42 Year
  Sex: Male

DRUGS (14)
  1. TOBRAMYCIN. [Suspect]
     Active Substance: TOBRAMYCIN
     Indication: INFLUENZA LIKE ILLNESS
     Route: 042
  2. AZTREONAM. [Concomitant]
     Active Substance: AZTREONAM
     Dosage: NEBULIZED AZTREONAM
  3. BUDESONIDE/FORMOTEROL FUMARATE [Concomitant]
  4. INSULIN [Concomitant]
     Active Substance: INSULIN NOS
  5. MEROPENEM. [Suspect]
     Active Substance: MEROPENEM
     Indication: INFLUENZA LIKE ILLNESS
     Route: 042
  6. DORNASE ALFA. [Concomitant]
     Active Substance: DORNASE ALFA
     Dosage: NEBULIZED DORNASE ALPHA
  7. OMALIZUMAB. [Concomitant]
     Active Substance: OMALIZUMAB
  8. MONTELUKAST [Concomitant]
     Active Substance: MONTELUKAST SODIUM
  9. VANCOMYCIN [Suspect]
     Active Substance: VANCOMYCIN
     Indication: INFLUENZA LIKE ILLNESS
     Route: 042
  10. CIPROFLOXACIN. [Suspect]
     Active Substance: CIPROFLOXACIN
     Indication: INFLUENZA LIKE ILLNESS
     Route: 048
  11. HYDROCORTISONE. [Concomitant]
     Active Substance: HYDROCORTISONE
     Dosage: SALINE NASAL RINSES
  12. AZITHROMYCIN ANHYDROUS. [Concomitant]
     Active Substance: AZITHROMYCIN ANHYDROUS
  13. CICLESONIDE [Concomitant]
     Active Substance: CICLESONIDE
  14. OSELTAMIVIR/OSELTAMIVIR PHOSPHATE [Suspect]
     Active Substance: OSELTAMIVIR PHOSPHATE
     Indication: INFLUENZA LIKE ILLNESS

REACTIONS (6)
  - Sepsis [Recovering/Resolving]
  - Influenza like illness [None]
  - Infective pulmonary exacerbation of cystic fibrosis [None]
  - Stevens-Johnson syndrome [None]
  - Toxic epidermal necrolysis [Recovering/Resolving]
  - Staphylococcal sepsis [None]
